FAERS Safety Report 8784662 (Version 1)
Quarter: 2012Q4

REPORT INFORMATION
  Report Type: Spontaneous
  Country: US (occurrence: None)
  Receive Date: 20120830
  Receipt Date: 20120830
  Transmission Date: 20130627
  Serious: Yes (Hospitalization, Other)
  Sender: FDA-Public Use
  Company Number: NSR_00637_2012

PATIENT
  Age: 25 Year
  Sex: Male

DRUGS (5)
  1. LAMOTRIGINE [Suspect]
     Indication: GRAND MAL CONVULSION
  2. LAMOTRIGINE [Suspect]
     Indication: GRAND MAL CONVULSION
  3. LAMOTRIGINE [Suspect]
     Indication: GRAND MAL CONVULSION
  4. LAMOTRIGINE [Suspect]
     Indication: GRAND MAL CONVULSION
  5. LEVETIRACETAM [Concomitant]

REACTIONS (2)
  - Oculogyric crisis [None]
  - Toxicity to various agents [None]
